FAERS Safety Report 20784780 (Version 1)
Quarter: 2022Q2

REPORT INFORMATION
  Report Type: Spontaneous
  Country: US (occurrence: US)
  Receive Date: 20220504
  Receipt Date: 20220504
  Transmission Date: 20220721
  Serious: No
  Sender: FDA-Public Use
  Company Number: US-PFIZER INC-202101622466

PATIENT
  Age: 77 Year
  Sex: Female
  Weight: 86.18 kg

DRUGS (1)
  1. SERTRALINE HYDROCHLORIDE [Suspect]
     Active Substance: SERTRALINE HYDROCHLORIDE
     Indication: Restlessness
     Dosage: 25 MG ONCE AS NEEDED WITH NERVOUSNESS
     Dates: start: 202110

REACTIONS (2)
  - Drug ineffective [Unknown]
  - Intentional product misuse [Unknown]
